FAERS Safety Report 7560630-5 (Version None)
Quarter: 2011Q2

REPORT INFORMATION
  Report Type: 
  Country: None (occurrence: None)
  Receive Date: 20110614
  Receipt Date: 20110614
  Transmission Date: 20111010
  Serious: Yes (Life-Threatening, Hospitalization, Other)
  Sender: FDA-Public Use
  Company Number: 2010BI035026

PATIENT
  Age: 57 Year
  Sex: Female
  Weight: 63 kg

DRUGS (23)
  1. GARENOXACIN MESYLATE [Concomitant]
  2. FAMOTIDINE [Concomitant]
  3. PRIMPERAN TAB [Concomitant]
  4. VINCRISTINE SULFATE [Concomitant]
  5. INDIUM (111IN) ZEVALIN (IBRITUMOMAB TIUXETAN) [Suspect]
     Indication: FOLLICLE CENTRE LYMPHOMA, FOLLICULAR GRADE I, II, III STAGE IV
     Dosage: 130 MBQ; 1X; IV
     Route: 042
     Dates: start: 20100309, end: 20110309
  6. RITUXIMAB (RITUXIMAB) INJECTION [Suspect]
     Indication: FOLLICLE CENTRE LYMPHOMA, FOLLICULAR GRADE I, II, III STAGE IV
     Dosage: 250 MG/M2; IX; IV DRIP
     Route: 041
     Dates: start: 20100316, end: 20100316
  7. PREDNISOLONE [Concomitant]
  8. ZOLPIDEM [Concomitant]
  9. DOXORUBICIN HYDROCHLORIDE [Concomitant]
  10. ZEVALIN [Suspect]
     Indication: FOLLICLE CENTRE LYMPHOMA, FOLLICULAR GRADE I, II, III STAGE IV
     Dosage: 935 MBQ;1X;IV
     Route: 042
     Dates: start: 20100316, end: 20100316
  11. LOXONIN [Concomitant]
  12. FERROUS CITRATE [Concomitant]
  13. RITUXIMAB [Concomitant]
  14. LEBENIN [Concomitant]
  15. FLUDEOXYGLUCOSE [Concomitant]
  16. POLARAMINE [Concomitant]
  17. MAGNESIUM OXIDE [Concomitant]
  18. PANCREAZE [Concomitant]
  19. GASLON N_OD [Concomitant]
  20. GASMOTIN [Concomitant]
  21. RITUXIMAB (RITUXIMAB) INJECTION [Suspect]
     Indication: FOLLICLE CENTRE LYMPHOMA, FOLLICULAR GRADE I, II, III STAGE IV
     Dosage: 250 MG/M2; IX; IV DRIP
     Route: 041
     Dates: start: 20100309, end: 20100309
  22. GARENOXACIN MESYLATE [Concomitant]
  23. CYCLOPHOSPHAMIDE [Concomitant]

REACTIONS (12)
  - HAEMOGLOBIN DECREASED [None]
  - FLATULENCE [None]
  - ABDOMINAL PAIN [None]
  - BLOOD ALBUMIN DECREASED [None]
  - B-CELL LYMPHOMA RECURRENT [None]
  - ENTEROCOLITIS [None]
  - NEUTROPHIL COUNT DECREASED [None]
  - IRON DEFICIENCY [None]
  - PLATELET COUNT DECREASED [None]
  - C-REACTIVE PROTEIN INCREASED [None]
  - ILEUS [None]
  - PYREXIA [None]
